FAERS Safety Report 22212297 (Version 1)
Quarter: 2023Q2

REPORT INFORMATION
  Report Type: Report from Study
  Country: EG (occurrence: EG)
  Receive Date: 20230414
  Receipt Date: 20230414
  Transmission Date: 20230721
  Serious: Yes (Other)
  Sender: FDA-Public Use
  Company Number: EG-002147023-NVSC2023EG084923

PATIENT
  Age: 89 Year
  Sex: Male

DRUGS (3)
  1. COSENTYX [Suspect]
     Active Substance: SECUKINUMAB
     Indication: Psoriasis
     Dosage: 2 DOSAGE FORM, QW (2 PRE FILLED PENS) (FOR 6 OR 7 MONTHS) (AT THE END OF 2021 OR THE BEGINNING OF 20
     Route: 065
     Dates: end: 202301
  2. COSENTYX [Suspect]
     Active Substance: SECUKINUMAB
     Dosage: 2 DOSAGE FORM, QMO (19 OR 20 MAR 2023) (THEN 2 PREFILLED PENS MONTHLY AS A MAINTENANCE DOSE)
     Route: 065
     Dates: start: 202303
  3. AMARYL [Concomitant]
     Active Substance: GLIMEPIRIDE
     Indication: Diabetes mellitus
     Dosage: 3 MG, QD (1- 3 YEARS AGO)
     Route: 065
     Dates: start: 2020

REACTIONS (5)
  - Glycosylated haemoglobin increased [Unknown]
  - Rebound psoriasis [Recovering/Resolving]
  - Skin exfoliation [Recovering/Resolving]
  - Scratch [Recovering/Resolving]
  - Skin haemorrhage [Recovering/Resolving]

NARRATIVE: CASE EVENT DATE: 20230101
